FAERS Safety Report 14969734 (Version 1)
Quarter: 2018Q2

REPORT INFORMATION
  Report Type: Other
  Country: IT (occurrence: IT)
  Receive Date: 20180604
  Receipt Date: 20180604
  Transmission Date: 20180711
  Serious: Yes (Life-Threatening, Other)
  Sender: FDA-Public Use
  Company Number: IT-APOTEX-2018AP015101

PATIENT
  Age: 62 Year
  Sex: Male
  Weight: 65 kg

DRUGS (5)
  1. ZOLPIDEM [Suspect]
     Active Substance: ZOLPIDEM\ZOLPIDEM TARTRATE
     Indication: PRODUCT USED FOR UNKNOWN INDICATION
     Dosage: 10 MG, DAILY
     Route: 048
     Dates: start: 20180423, end: 20180510
  2. ROCEFIN [Suspect]
     Active Substance: CEFTRIAXONE SODIUM
     Indication: PRODUCT USED FOR UNKNOWN INDICATION
     Dosage: 1 G/10 ML
     Route: 051
     Dates: start: 20180404
  3. QUETIAPINE. [Suspect]
     Active Substance: QUETIAPINE
     Indication: PRODUCT USED FOR UNKNOWN INDICATION
     Dosage: 200 MG, DAILY
     Route: 048
     Dates: start: 20180423, end: 20180510
  4. DIAZEPAM. [Suspect]
     Active Substance: DIAZEPAM
     Indication: PRODUCT USED FOR UNKNOWN INDICATION
     Dosage: AS NECESSARY
     Route: 048
     Dates: start: 20180423, end: 20180510
  5. AZITHROMYCIN DIHYDRATE. [Suspect]
     Active Substance: AZITHROMYCIN DIHYDRATE
     Indication: PNEUMONITIS
     Dosage: UNK
     Route: 048
     Dates: start: 20180404

REACTIONS (2)
  - Toxic epidermal necrolysis [Not Recovered/Not Resolved]
  - Erythema [Not Recovered/Not Resolved]

NARRATIVE: CASE EVENT DATE: 20180506
